FAERS Safety Report 8408746-5 (Version None)
Quarter: 2012Q2

REPORT INFORMATION
  Report Type: 
  Country: None (occurrence: None)
  Receive Date: 20120604
  Receipt Date: 20120525
  Transmission Date: 20120825
  Serious: Yes (Hospitalization, Other)
  Sender: FDA-Public Use
  Company Number: US-ACTELION-A-US2012-64412

PATIENT

DRUGS (3)
  1. TRACLEER [Suspect]
     Indication: PULMONARY ARTERIAL HYPERTENSION
     Dosage: UNK
     Route: 048
     Dates: start: 20091223, end: 20120322
  2. REMODULIN [Concomitant]
  3. ADCIRCA [Concomitant]

REACTIONS (2)
  - LUNG TRANSPLANT [None]
  - CARDIAC DISORDER [None]
